FAERS Safety Report 22646727 (Version 1)
Quarter: 2023Q2

REPORT INFORMATION
  Report Type: Report from Study
  Country: GB (occurrence: GB)
  Receive Date: 20230627
  Receipt Date: 20230627
  Transmission Date: 20230722
  Serious: Yes (Hospitalization)
  Sender: FDA-Public Use
  Company Number: GB-CELGENE-GBR-20210101276

PATIENT
  Age: 72 Year
  Sex: Male

DRUGS (8)
  1. DEXAMETHASONE [Suspect]
     Active Substance: DEXAMETHASONE
     Indication: Plasma cell myeloma
     Dosage: UNIT DOSE : 10 MILLIGRAM, FREQUENCY TIME : 1 WEEKS, DURATION : 54 DAYS
     Route: 050
     Dates: start: 20201231, end: 20210128
  2. DEXAMETHASONE [Suspect]
     Active Substance: DEXAMETHASONE
     Indication: Plasma cell myeloma
     Dosage: UNIT DOSE : 10 MILLIGRAM, FREQUENCY TIME : 1 WEEKS, DURATION : 54 DAYS
     Route: 050
     Dates: start: 20201203, end: 20201230
  3. DEXAMETHASONE [Suspect]
     Active Substance: DEXAMETHASONE
     Indication: Plasma cell myeloma
     Dosage: UNIT DOSE : 10 MILLIGRAM, FREQUENCY TIME : 1 WEEKS, DURATION : 27 DAYS
     Route: 050
     Dates: start: 20201008, end: 20201104
  4. DEXAMETHASONE [Suspect]
     Active Substance: DEXAMETHASONE
     Indication: Plasma cell myeloma
     Dosage: UNIT DOSE : 10 MILLIGRAM, FREQUENCY TIME : 1 WEEKS, DURATION : 27 DAYS
     Route: 050
     Dates: start: 20201105, end: 20201202
  5. REVLIMID [Suspect]
     Active Substance: LENALIDOMIDE
     Indication: Plasma cell myeloma
     Dosage: UNIT DOSE : 25 MILLIGRAM, FREQUENCY TIME : 1 DAYS, DURATION : 20 DAYS
     Route: 050
     Dates: start: 20201105, end: 20201125
  6. REVLIMID [Suspect]
     Active Substance: LENALIDOMIDE
     Indication: Plasma cell myeloma
     Dosage: UNIT DOSE : 25 MILLIGRAM, FREQUENCY TIME : 1 DAYS, DURATION : 11 DAYS
     Route: 050
     Dates: start: 20201008, end: 20201019
  7. REVLIMID [Suspect]
     Active Substance: LENALIDOMIDE
     Indication: Plasma cell myeloma
     Dosage: UNIT DOSE : 25 MILLIGRAM, FREQUENCY TIME : 1 DAYS, DURATION : 2 DAYS
     Route: 050
     Dates: start: 20201026, end: 20201028
  8. REVLIMID [Suspect]
     Active Substance: LENALIDOMIDE
     Indication: Plasma cell myeloma
     Dosage: UNIT DOSE : 25 MILLIGRAM, FREQUENCY TIME : 1 DAYS, DURATION : 21 DAYS
     Route: 050
     Dates: start: 20201203, end: 20201223

REACTIONS (2)
  - Cancer pain [Recovered/Resolved]
  - Off label use [Unknown]

NARRATIVE: CASE EVENT DATE: 20201229
